FAERS Safety Report 14901561 (Version 1)
Quarter: 2018Q2

REPORT INFORMATION
  Report Type: Spontaneous
  Country: US (occurrence: US)
  Receive Date: 20180429
  Receipt Date: 20180429
  Transmission Date: 20180711
  Serious: Yes (Life-Threatening, Disabling, Other)
  Sender: FDA-Public Use
  Company Number: None

PATIENT
  Age: 46 Year
  Sex: Female
  Weight: 67.5 kg

DRUGS (1)
  1. DULOXETINE. [Suspect]
     Active Substance: DULOXETINE
     Indication: DEPRESSION
     Dosage: ?          QUANTITY:90 CAPSULE(S);?
     Route: 048
     Dates: start: 20180310

REACTIONS (10)
  - Condition aggravated [None]
  - Anxiety [None]
  - Product substitution issue [None]
  - Headache [None]
  - Loss of personal independence in daily activities [None]
  - Drug ineffective [None]
  - Pain [None]
  - Panic attack [None]
  - Depressed mood [None]
  - Intentional product use issue [None]

NARRATIVE: CASE EVENT DATE: 20180310
